FAERS Safety Report 4557917-7 (Version None)
Quarter: 2005Q1

REPORT INFORMATION
  Report Type: 
  Country: None (occurrence: None)
  Receive Date: 20050121
  Receipt Date: 20040112
  Transmission Date: 20050727
  Serious: Yes (Hospitalization)
  Sender: FDA-Public Use
  Company Number: US-BRISTOL-MYERS SQUIBB COMPANY-12487385

PATIENT
  Sex: Male

DRUGS (4)
  1. SERZONE [Suspect]
     Route: 048
  2. LORAZEPAM [Concomitant]
  3. RESTORIL [Concomitant]
  4. DILANTIN [Concomitant]

REACTIONS (2)
  - HEPATITIS TOXIC [None]
  - RECTAL HAEMORRHAGE [None]
